FAERS Safety Report 8136895-8 (Version None)
Quarter: 2012Q1

REPORT INFORMATION
  Report Type: 
  Country: None (occurrence: None)
  Receive Date: 20120214
  Receipt Date: 20120209
  Transmission Date: 20120608
  Serious: Yes (Hospitalization, Other)
  Sender: FDA-Public Use
  Company Number: PHEH2009US07545

PATIENT
  Sex: Male

DRUGS (37)
  1. AREDIA [Suspect]
     Indication: PROSTATE CANCER METASTATIC
     Dates: start: 20010215, end: 20020325
  2. COUMADIN [Concomitant]
  3. FUROSEMIDE [Concomitant]
  4. HYTRIN [Concomitant]
     Dosage: 5 MG, QHS
  5. PAXIL [Concomitant]
  6. COREG [Concomitant]
  7. METHADONE HCL [Concomitant]
  8. CASODEX [Concomitant]
  9. SINGULAIR [Concomitant]
  10. DEXAMETHASONE [Concomitant]
  11. KYTRIL [Concomitant]
  12. ENALAPRIL [Concomitant]
  13. PACERONE [Concomitant]
     Dosage: 200 MG, DAILY
  14. CLEOCIN HYDROCHLORIDE [Concomitant]
     Dosage: 300 MG, Q6H
  15. PROCHLORPERAZINE [Concomitant]
  16. VICODIN [Concomitant]
  17. DIPHENHYDRAMINE HCL [Concomitant]
  18. AMIODARONE HCL [Concomitant]
  19. BELLAMINE [Concomitant]
  20. CLONIDINE [Concomitant]
     Dosage: 0.2 MG, BID
  21. LORAZEPAM [Concomitant]
  22. AREDIA [Suspect]
     Dates: start: 20030201, end: 20041101
  23. ATACAND [Concomitant]
  24. METFORMIN HCL [Concomitant]
  25. LISINOPRIL [Concomitant]
  26. IBUPROFEN (ADVIL) [Concomitant]
  27. LEVAQUIN [Concomitant]
  28. AVANDIA [Concomitant]
  29. CIPROFLOXACIN [Concomitant]
  30. CLEOCIN HYDROCHLORIDE [Concomitant]
     Dosage: 600 MG, Q6H
     Route: 042
  31. ZOFRAN [Concomitant]
  32. ZOMETA [Suspect]
     Indication: PROSTATE CANCER METASTATIC
     Dosage: 1 MG, MONTHLY
     Dates: start: 20020325, end: 20030201
  33. TEMAZEPAM [Concomitant]
  34. NORCO [Concomitant]
  35. LUPRON [Concomitant]
  36. BISOPROLOL FUMARATE AND HYDROCHLOROTHIAZIDE [Concomitant]
  37. METOCLOPRAMIDE [Concomitant]

REACTIONS (77)
  - OSTEONECROSIS OF JAW [None]
  - ANXIETY [None]
  - TENDERNESS [None]
  - TOOTH ABSCESS [None]
  - TACHYCARDIA [None]
  - ATRIAL FIBRILLATION [None]
  - TINNITUS [None]
  - WEIGHT DECREASED [None]
  - GAIT DISTURBANCE [None]
  - EXPOSED BONE IN JAW [None]
  - INJURY [None]
  - DIABETES MELLITUS [None]
  - HAEMORRHAGE [None]
  - VOMITING [None]
  - SKIN DISORDER [None]
  - OBESITY [None]
  - METASTASES TO BONE [None]
  - MUSCULOSKELETAL CHEST PAIN [None]
  - COUGH [None]
  - LIP HAEMORRHAGE [None]
  - DEAFNESS [None]
  - RHINITIS [None]
  - MENISCUS LESION [None]
  - FAECAL INCONTINENCE [None]
  - DISABILITY [None]
  - CARDIAC FAILURE CONGESTIVE [None]
  - LEFT VENTRICULAR DYSFUNCTION [None]
  - DEPRESSION [None]
  - LUNG INFILTRATION [None]
  - LETHARGY [None]
  - DYSPHAGIA [None]
  - OSTEOARTHRITIS [None]
  - VISION BLURRED [None]
  - MALIGNANT MELANOMA [None]
  - BACK PAIN [None]
  - RENAL CYST [None]
  - PULMONARY FIBROSIS [None]
  - DYSPNOEA [None]
  - DIZZINESS [None]
  - BASAL GANGLIA INFARCTION [None]
  - GINGIVAL SWELLING [None]
  - ATRIAL FLUTTER [None]
  - CARDIOMYOPATHY [None]
  - EPISTAXIS [None]
  - SPINAL OSTEOARTHRITIS [None]
  - NEPHROLITHIASIS [None]
  - ADDISON'S DISEASE [None]
  - OSTEOMYELITIS [None]
  - INTERSTITIAL LUNG DISEASE [None]
  - CEREBRAL ATROPHY [None]
  - PAIN [None]
  - CATARACT [None]
  - HYPERTENSION [None]
  - CARDIOMEGALY [None]
  - HEPATIC CYST [None]
  - CHRONIC OBSTRUCTIVE PULMONARY DISEASE [None]
  - ANAEMIA [None]
  - ATELECTASIS [None]
  - VOCAL CORD THICKENING [None]
  - FALL [None]
  - PARAESTHESIA [None]
  - EXOSTOSIS [None]
  - LIGAMENT RUPTURE [None]
  - MALAISE [None]
  - SLEEP APNOEA SYNDROME [None]
  - HYPOPNOEA [None]
  - URINARY INCONTINENCE [None]
  - SINUSITIS [None]
  - ANHEDONIA [None]
  - PROSTATE CANCER METASTATIC [None]
  - NAUSEA [None]
  - COMPRESSION FRACTURE [None]
  - DYSPHONIA [None]
  - LARYNGEAL CYST [None]
  - HEMIPARESIS [None]
  - HYPOXIA [None]
  - ROTATOR CUFF SYNDROME [None]
